FAERS Safety Report 6165458-9 (Version None)
Quarter: 2009Q2

REPORT INFORMATION
  Report Type: 
  Country: None (occurrence: None)
  Receive Date: 20090423
  Receipt Date: 20090421
  Transmission Date: 20091009
  Serious: Yes (Death)
  Sender: FDA-Public Use
  Company Number: US-RB-009713-09

PATIENT
  Sex: Female
  Weight: 67.05 kg

DRUGS (5)
  1. SUBOXONE [Suspect]
     Route: 060
     Dates: start: 20090213
  2. VISTARIL [Concomitant]
     Indication: ANXIETY
     Dosage: PATIENT TOOK 50MG AS NEEDED
     Route: 048
     Dates: start: 20090209
  3. XANAX [Concomitant]
     Indication: ANXIETY
     Dosage: PATIENT TOOK 0.5MG AS NEEDED
     Route: 048
     Dates: start: 20081001
  4. CYMBALTA [Concomitant]
     Indication: DEPRESSION
     Route: 048
     Dates: start: 20070101
  5. SALICYLATE [Concomitant]
     Indication: DRUG USE FOR UNKNOWN INDICATION
     Dosage: DOSING INFORMATION UNKNOWN.
     Route: 065

REACTIONS (2)
  - CONGESTIVE CARDIOMYOPATHY [None]
  - LOBAR PNEUMONIA [None]
